FAERS Safety Report 19159223 (Version 1)
Quarter: 2021Q2

REPORT INFORMATION
  Report Type: Report from Study
  Country: US (occurrence: US)
  Receive Date: 20210420
  Receipt Date: 20210420
  Transmission Date: 20210717
  Serious: Yes (Hospitalization)
  Sender: FDA-Public Use
  Company Number: US-UCBSA-2021016752

PATIENT
  Sex: Male

DRUGS (1)
  1. LEVETIRACETAM. [Suspect]
     Active Substance: LEVETIRACETAM
     Indication: SEIZURE
     Dosage: 500 MG TABLET (3 TABLETS IN AM, 2 AT NOON AND 3 AT PM)

REACTIONS (2)
  - Injury [Not Recovered/Not Resolved]
  - Fall [Not Recovered/Not Resolved]
